FAERS Safety Report 24685221 (Version 1)
Quarter: 2024Q4

REPORT INFORMATION
  Report Type: Spontaneous
  Country: NO (occurrence: NO)
  Receive Date: 20241202
  Receipt Date: 20241202
  Transmission Date: 20250115
  Serious: Yes (Other)
  Sender: SANDOZ
  Company Number: NO-002147023-PHHY2012NO080657

PATIENT
  Sex: Female

DRUGS (17)
  1. AZATHIOPRINE [Suspect]
     Active Substance: AZATHIOPRINE
     Indication: Granulomatosis with polyangiitis
     Dosage: UNKNOWN/D
     Route: 065
  2. CYCLOPHOSPHAMIDE [Suspect]
     Active Substance: CYCLOPHOSPHAMIDE
     Dosage: UNKNOWN/D
     Route: 042
  3. CYCLOPHOSPHAMIDE [Suspect]
     Active Substance: CYCLOPHOSPHAMIDE
     Indication: Granulomatosis with polyangiitis
     Dosage: UNKNOWN/D
     Route: 065
  4. EVEROLIMUS [Suspect]
     Active Substance: EVEROLIMUS
     Indication: Granulomatosis with polyangiitis
     Dosage: UNKNOWN/D
     Route: 065
     Dates: start: 200611, end: 2007
  5. METHOTREXATE [Suspect]
     Active Substance: METHOTREXATE
     Dosage: UNK
     Route: 065
  6. METHOTREXATE [Suspect]
     Active Substance: METHOTREXATE
     Indication: Granulomatosis with polyangiitis
     Dosage: UNKNOWN/D
     Route: 065
  7. MYCOPHENOLATE MOFETIL [Suspect]
     Active Substance: MYCOPHENOLATE MOFETIL
     Indication: Product used for unknown indication
     Dosage: UNKNOWN/D
     Route: 065
     Dates: end: 2006
  8. PROGRAF [Suspect]
     Active Substance: TACROLIMUS
     Indication: Granulomatosis with polyangiitis
     Dosage: UNKNOWN/D
     Route: 065
     Dates: start: 200611, end: 2006
  9. RITUXIMAB [Suspect]
     Active Substance: RITUXIMAB
     Indication: Rheumatoid arthritis
     Dosage: 2000 MG, TWO INFUSIONS OF 1000 MG, 2 WEEKS APART
     Route: 042
     Dates: start: 200611
  10. RITUXIMAB [Suspect]
     Active Substance: RITUXIMAB
     Dosage: 4000 MG
     Route: 065
     Dates: end: 200611
  11. RITUXIMAB [Suspect]
     Active Substance: RITUXIMAB
     Dosage: GIVEN AFTER 1 MONTH FROM THE EVENT; UNKNOWN/D
     Route: 065
     Dates: start: 200611
  12. RITUXIMAB [Suspect]
     Active Substance: RITUXIMAB
     Indication: Rheumatoid arthritis
     Dosage: GIVEN AFTER 1 MONTH FROM THE EVENT; UNKNOWN/D
     Route: 065
  13. TACROLIMUS [Suspect]
     Active Substance: TACROLIMUS
     Indication: Granulomatosis with polyangiitis
     Dosage: UNK
     Route: 065
  14. CEFOTAXIME [Concomitant]
     Active Substance: CEFOTAXIME SODIUM
     Indication: Product used for unknown indication
     Dosage: UNKNOWN/D
     Route: 042
  15. MYCOPHENOLATE MOFETIL [Concomitant]
     Active Substance: MYCOPHENOLATE MOFETIL
     Indication: Product used for unknown indication
     Dosage: UNKNOWN/D
     Route: 065
  16. PREDNISOLONE [Concomitant]
     Active Substance: PREDNISOLONE
     Indication: Product used for unknown indication
     Dosage: 0-15 MG DAILY (VARYING DOSE)
     Route: 065
  17. TRIMETHOPRIM [Concomitant]
     Active Substance: TRIMETHOPRIM
     Indication: Product used for unknown indication
     Dosage: UNKNOWN/D
     Route: 042

REACTIONS (4)
  - Colitis [Recovering/Resolving]
  - Neutropenia [Recovered/Resolved]
  - Oral candidiasis [Recovered/Resolved]
  - Pyrexia [Unknown]

NARRATIVE: CASE EVENT DATE: 20070101
